FAERS Safety Report 26162802 (Version 1)
Quarter: 2025Q4

REPORT INFORMATION
  Report Type: Spontaneous
  Country: GB (occurrence: GB)
  Receive Date: 20251216
  Receipt Date: 20251216
  Transmission Date: 20260118
  Serious: Yes (Hospitalization)
  Sender: MYLAN
  Company Number: GB-MYLANLABS-2025M1107312

PATIENT
  Age: 36 Year
  Sex: Male

DRUGS (60)
  1. PREGABALIN [Interacting]
     Active Substance: PREGABALIN
     Indication: Neuralgia
     Dosage: 75 MILLIGRAM, BID
     Dates: start: 2025, end: 2025
  2. PREGABALIN [Interacting]
     Active Substance: PREGABALIN
     Dosage: 75 MILLIGRAM, BID
     Route: 065
     Dates: start: 2025, end: 2025
  3. PREGABALIN [Interacting]
     Active Substance: PREGABALIN
     Dosage: 75 MILLIGRAM, BID
     Route: 065
     Dates: start: 2025, end: 2025
  4. PREGABALIN [Interacting]
     Active Substance: PREGABALIN
     Dosage: 75 MILLIGRAM, BID
     Dates: start: 2025, end: 2025
  5. ZUCLOPENTHIXOL [Interacting]
     Active Substance: ZUCLOPENTHIXOL
     Indication: Schizophrenia
     Dosage: 500 MILLIGRAM, BIWEEKLY
  6. ZUCLOPENTHIXOL [Interacting]
     Active Substance: ZUCLOPENTHIXOL
     Dosage: 500 MILLIGRAM, BIWEEKLY
  7. ZUCLOPENTHIXOL [Interacting]
     Active Substance: ZUCLOPENTHIXOL
     Dosage: 500 MILLIGRAM, BIWEEKLY
     Route: 065
  8. ZUCLOPENTHIXOL [Interacting]
     Active Substance: ZUCLOPENTHIXOL
     Dosage: 500 MILLIGRAM, BIWEEKLY
     Route: 065
  9. ZUCLOPENTHIXOL [Interacting]
     Active Substance: ZUCLOPENTHIXOL
     Dosage: 500 MILLIGRAM, QW
     Dates: end: 2025
  10. ZUCLOPENTHIXOL [Interacting]
     Active Substance: ZUCLOPENTHIXOL
     Dosage: 500 MILLIGRAM, QW
     Dates: end: 2025
  11. ZUCLOPENTHIXOL [Interacting]
     Active Substance: ZUCLOPENTHIXOL
     Dosage: 500 MILLIGRAM, QW
     Route: 065
     Dates: end: 2025
  12. ZUCLOPENTHIXOL [Interacting]
     Active Substance: ZUCLOPENTHIXOL
     Dosage: 500 MILLIGRAM, QW
     Route: 065
     Dates: end: 2025
  13. CLONAZEPAM [Concomitant]
     Active Substance: CLONAZEPAM
     Indication: Product used for unknown indication
     Dosage: 1 MILLIGRAM, TID
  14. CLONAZEPAM [Concomitant]
     Active Substance: CLONAZEPAM
     Dosage: 1 MILLIGRAM, TID
     Route: 065
  15. CLONAZEPAM [Concomitant]
     Active Substance: CLONAZEPAM
     Dosage: 1 MILLIGRAM, TID
     Route: 065
  16. CLONAZEPAM [Concomitant]
     Active Substance: CLONAZEPAM
     Dosage: 1 MILLIGRAM, TID
  17. CYANOCOBALAMIN [Concomitant]
     Active Substance: CYANOCOBALAMIN
     Indication: Product used for unknown indication
     Dosage: 1 MILLIGRAM, QD
  18. CYANOCOBALAMIN [Concomitant]
     Active Substance: CYANOCOBALAMIN
     Dosage: 1 MILLIGRAM, QD
     Route: 065
  19. CYANOCOBALAMIN [Concomitant]
     Active Substance: CYANOCOBALAMIN
     Dosage: 1 MILLIGRAM, QD
     Route: 065
  20. CYANOCOBALAMIN [Concomitant]
     Active Substance: CYANOCOBALAMIN
     Dosage: 1 MILLIGRAM, QD
  21. CHOLECALCIFEROL [Concomitant]
     Active Substance: CHOLECALCIFEROL
     Indication: Product used for unknown indication
     Dosage: UNK, QD (800 UNITS)
  22. CHOLECALCIFEROL [Concomitant]
     Active Substance: CHOLECALCIFEROL
     Dosage: UNK, QD (800 UNITS)
     Route: 065
  23. CHOLECALCIFEROL [Concomitant]
     Active Substance: CHOLECALCIFEROL
     Dosage: UNK, QD (800 UNITS)
     Route: 065
  24. CHOLECALCIFEROL [Concomitant]
     Active Substance: CHOLECALCIFEROL
     Dosage: UNK, QD (800 UNITS)
  25. LORATADINE [Concomitant]
     Active Substance: LORATADINE
     Indication: Product used for unknown indication
     Dosage: 10 MILLIGRAM, QD
  26. LORATADINE [Concomitant]
     Active Substance: LORATADINE
     Dosage: 10 MILLIGRAM, QD
     Route: 065
  27. LORATADINE [Concomitant]
     Active Substance: LORATADINE
     Dosage: 10 MILLIGRAM, QD
     Route: 065
  28. LORATADINE [Concomitant]
     Active Substance: LORATADINE
     Dosage: 10 MILLIGRAM, QD
  29. ACETAMINOPHEN [Concomitant]
     Active Substance: ACETAMINOPHEN
     Indication: Product used for unknown indication
     Dosage: 1 GRAM, PRN (1 G UP TO FOUR TIMES DAILY WHEN REQUIRED)
  30. ACETAMINOPHEN [Concomitant]
     Active Substance: ACETAMINOPHEN
     Dosage: 1 GRAM, PRN (1 G UP TO FOUR TIMES DAILY WHEN REQUIRED)
     Route: 065
  31. ACETAMINOPHEN [Concomitant]
     Active Substance: ACETAMINOPHEN
     Dosage: 1 GRAM, PRN (1 G UP TO FOUR TIMES DAILY WHEN REQUIRED)
     Route: 065
  32. ACETAMINOPHEN [Concomitant]
     Active Substance: ACETAMINOPHEN
     Dosage: 1 GRAM, PRN (1 G UP TO FOUR TIMES DAILY WHEN REQUIRED)
  33. IBUPROFEN [Concomitant]
     Active Substance: IBUPROFEN
     Indication: Product used for unknown indication
     Dosage: 400 MILLIGRAM, PRN (400 MG UP TO THREE TIMES DAILY WHEN REQUIRED)
  34. IBUPROFEN [Concomitant]
     Active Substance: IBUPROFEN
     Dosage: 400 MILLIGRAM, PRN (400 MG UP TO THREE TIMES DAILY WHEN REQUIRED)
     Route: 065
  35. IBUPROFEN [Concomitant]
     Active Substance: IBUPROFEN
     Dosage: 400 MILLIGRAM, PRN (400 MG UP TO THREE TIMES DAILY WHEN REQUIRED)
     Route: 065
  36. IBUPROFEN [Concomitant]
     Active Substance: IBUPROFEN
     Dosage: 400 MILLIGRAM, PRN (400 MG UP TO THREE TIMES DAILY WHEN REQUIRED)
  37. NICOTINE [Concomitant]
     Active Substance: NICOTINE
     Indication: Product used for unknown indication
     Dosage: UNK, PRN (AS REQUIRED)
  38. NICOTINE [Concomitant]
     Active Substance: NICOTINE
     Dosage: UNK, PRN (AS REQUIRED)
     Route: 065
  39. NICOTINE [Concomitant]
     Active Substance: NICOTINE
     Dosage: UNK, PRN (AS REQUIRED)
     Route: 065
  40. NICOTINE [Concomitant]
     Active Substance: NICOTINE
     Dosage: UNK, PRN (AS REQUIRED)
  41. BISOPROLOL [Concomitant]
     Active Substance: BISOPROLOL
     Indication: Product used for unknown indication
     Dosage: 1.25 MILLIGRAM, QD
  42. BISOPROLOL [Concomitant]
     Active Substance: BISOPROLOL
     Dosage: 1.25 MILLIGRAM, QD
     Route: 065
  43. BISOPROLOL [Concomitant]
     Active Substance: BISOPROLOL
     Dosage: 1.25 MILLIGRAM, QD
     Route: 065
  44. BISOPROLOL [Concomitant]
     Active Substance: BISOPROLOL
     Dosage: 1.25 MILLIGRAM, QD
  45. CODEINE PHOSPHATE [Concomitant]
     Active Substance: CODEINE PHOSPHATE
     Indication: Product used for unknown indication
     Dosage: 30 MILLIGRAM, QID (30 MG UP TO FOUR TIMES DAILY WHEN REQUIRED)
  46. CODEINE PHOSPHATE [Concomitant]
     Active Substance: CODEINE PHOSPHATE
     Dosage: 30 MILLIGRAM, QID (30 MG UP TO FOUR TIMES DAILY WHEN REQUIRED)
     Route: 065
  47. CODEINE PHOSPHATE [Concomitant]
     Active Substance: CODEINE PHOSPHATE
     Dosage: 30 MILLIGRAM, QID (30 MG UP TO FOUR TIMES DAILY WHEN REQUIRED)
     Route: 065
  48. CODEINE PHOSPHATE [Concomitant]
     Active Substance: CODEINE PHOSPHATE
     Dosage: 30 MILLIGRAM, QID (30 MG UP TO FOUR TIMES DAILY WHEN REQUIRED)
  49. LORAZEPAM [Concomitant]
     Active Substance: LORAZEPAM
     Indication: Product used for unknown indication
     Dosage: 1 MILLIGRAM
  50. LORAZEPAM [Concomitant]
     Active Substance: LORAZEPAM
     Dosage: 1 MILLIGRAM
  51. LORAZEPAM [Concomitant]
     Active Substance: LORAZEPAM
     Dosage: 1 MILLIGRAM
     Route: 065
  52. LORAZEPAM [Concomitant]
     Active Substance: LORAZEPAM
     Dosage: 1 MILLIGRAM
     Route: 065
  53. LORAZEPAM [Concomitant]
     Active Substance: LORAZEPAM
     Dosage: 2 MILLIGRAM, QD (24 HOURS)
  54. LORAZEPAM [Concomitant]
     Active Substance: LORAZEPAM
     Dosage: 2 MILLIGRAM, QD (24 HOURS)
  55. LORAZEPAM [Concomitant]
     Active Substance: LORAZEPAM
     Dosage: 2 MILLIGRAM, QD (24 HOURS)
     Route: 065
  56. LORAZEPAM [Concomitant]
     Active Substance: LORAZEPAM
     Dosage: 2 MILLIGRAM, QD (24 HOURS)
     Route: 065
  57. NICOTINE [Concomitant]
     Active Substance: NICOTINE
     Indication: Product used for unknown indication
     Dosage: UNK, PRN (AS REQUIRED), RESPIRATORY INHALATION
  58. NICOTINE [Concomitant]
     Active Substance: NICOTINE
     Dosage: UNK, PRN (AS REQUIRED), RESPIRATORY INHALATION
     Route: 055
  59. NICOTINE [Concomitant]
     Active Substance: NICOTINE
     Dosage: UNK, PRN (AS REQUIRED), RESPIRATORY INHALATION
     Route: 055
  60. NICOTINE [Concomitant]
     Active Substance: NICOTINE
     Dosage: UNK, PRN (AS REQUIRED), RESPIRATORY INHALATION

REACTIONS (2)
  - Drug interaction [Recovered/Resolved]
  - Priapism [Recovered/Resolved]

NARRATIVE: CASE EVENT DATE: 20250101
